FAERS Safety Report 4349643-4 (Version None)
Quarter: 2004Q2

REPORT INFORMATION
  Report Type: 
  Country: None (occurrence: None)
  Receive Date: 20040427
  Receipt Date: 20030930
  Transmission Date: 20050107
  Serious: No
  Sender: FDA-Public Use
  Company Number: 000657

PATIENT
  Age: 62 Year
  Sex: Female
  Weight: 138.3 kg

DRUGS (1)
  1. ZEVALIN [Suspect]
     Indication: NON-HODGKIN'S LYMPHOMA
     Dates: start: 20030826, end: 20030826

REACTIONS (1)
  - THROMBOCYTOPENIA [None]
